FAERS Safety Report 9352736 (Version 1)
Quarter: 2013Q2

REPORT INFORMATION
  Report Type: Report from Study
  Country: DE (occurrence: DE)
  Receive Date: 20130618
  Receipt Date: 20130618
  Transmission Date: 20140414
  Serious: Yes (Hospitalization)
  Sender: FDA-Public Use
  Company Number: DE-ROCHE-740602

PATIENT
  Age: 44 Year
  Sex: Male
  Weight: 77 kg

DRUGS (3)
  1. PEG-INTERFERON ALFA 2A [Suspect]
     Indication: CHRONIC HEPATITIS C
     Route: 058
     Dates: start: 20090113, end: 20100330
  2. PEG-INTERFERON ALFA 2A [Suspect]
     Route: 058
  3. RIBAVIRIN [Suspect]
     Indication: PRODUCT USED FOR UNKNOWN INDICATION
     Route: 048

REACTIONS (3)
  - Foot fracture [Recovered/Resolved]
  - Craniocerebral injury [Recovered/Resolved]
  - Road traffic accident [Unknown]
